FAERS Safety Report 6616042-1 (Version None)
Quarter: 2010Q1

REPORT INFORMATION
  Report Type: 
  Country: None (occurrence: None)
  Receive Date: 20100305
  Receipt Date: 20100226
  Transmission Date: 20100710
  Serious: Yes (Death, Hospitalization)
  Sender: FDA-Public Use
  Company Number: B0637760A

PATIENT
  Sex: Female

DRUGS (5)
  1. CLAVULIN [Suspect]
     Indication: URINARY TRACT INFECTION
     Dosage: 2G PER DAY
     Route: 048
     Dates: start: 20090624, end: 20090628
  2. PARACETAMOL [Concomitant]
     Indication: URINARY TRACT INFECTION
     Dosage: 500MG PER DAY
     Route: 048
     Dates: start: 20090624, end: 20090628
  3. RISPERDAL [Concomitant]
     Dosage: 2MG PER DAY
     Route: 048
  4. EN [Concomitant]
     Dosage: 2MG PER DAY
     Route: 048
  5. GUTRON [Concomitant]
     Dosage: 20DROP PER DAY
     Route: 048

REACTIONS (4)
  - DEATH [None]
  - PYREXIA [None]
  - SOMNOLENCE [None]
  - TONGUE OEDEMA [None]
